FAERS Safety Report 18891196 (Version 2)
Quarter: 2021Q1

REPORT INFORMATION
  Report Type: Spontaneous
  Country: US (occurrence: US)
  Receive Date: 20210215
  Receipt Date: 20210309
  Transmission Date: 20210420
  Serious: No
  Sender: FDA-Public Use
  Company Number: US-ASTRAZENECA-2021A051770

PATIENT
  Sex: Male

DRUGS (1)
  1. BYDUREON [Suspect]
     Active Substance: EXENATIDE
     Indication: DIABETES MELLITUS
     Route: 058

REACTIONS (9)
  - Drug dose omission by device [Unknown]
  - Intentional device misuse [Unknown]
  - Confusional state [Unknown]
  - Device malfunction [Unknown]
  - Drug delivery system malfunction [Unknown]
  - Visual impairment [Unknown]
  - Injection site haemorrhage [Unknown]
  - Incorrect dose administered by device [Unknown]
  - Memory impairment [Unknown]
